FAERS Safety Report 13555804 (Version 2)
Quarter: 2017Q3

REPORT INFORMATION
  Report Type: Spontaneous
  Country: US (occurrence: US)
  Receive Date: 20170517
  Receipt Date: 20170818
  Transmission Date: 20171127
  Serious: No
  Sender: FDA-Public Use
  Company Number: US-TEVA-768422ACC

PATIENT
  Sex: Female

DRUGS (1)
  1. COPAXONE [Suspect]
     Active Substance: GLATIRAMER ACETATE
     Dosage: FORM STRENGTH: UNKNOWN

REACTIONS (5)
  - Sleep disorder [Unknown]
  - Injection site erythema [Unknown]
  - Injection site pruritus [Unknown]
  - Gait disturbance [Unknown]
  - Anxiety [Unknown]
